FAERS Safety Report 13603906 (Version 1)
Quarter: 2017Q2

REPORT INFORMATION
  Report Type: Spontaneous
  Country: FR (occurrence: FR)
  Receive Date: 20170602
  Receipt Date: 20170602
  Transmission Date: 20170830
  Serious: Yes (Hospitalization, Other)
  Sender: FDA-Public Use
  Company Number: FR-ROCHE-1941925

PATIENT
  Age: 65 Year
  Sex: Male

DRUGS (6)
  1. DIFFU-K [Concomitant]
     Active Substance: POTASSIUM CHLORIDE
  2. OROCAL (FRANCE) [Concomitant]
  3. PREDNISONE. [Concomitant]
     Active Substance: PREDNISONE
  4. ROACTEMRA [Suspect]
     Active Substance: TOCILIZUMAB
     Indication: STILL^S DISEASE
     Route: 041
     Dates: start: 20170228
  5. ASPIRINE [Concomitant]
     Active Substance: ASPIRIN
     Route: 065
  6. ROACTEMRA [Suspect]
     Active Substance: TOCILIZUMAB
     Dosage: SECOND INFUSION
     Route: 041
     Dates: start: 20170324

REACTIONS (4)
  - Product use in unapproved indication [Unknown]
  - Enteritis [Recovered/Resolved]
  - Off label use [Unknown]
  - Colitis [Recovered/Resolved]

NARRATIVE: CASE EVENT DATE: 201703
